FAERS Safety Report 24983933 (Version 1)
Quarter: 2025Q1

REPORT INFORMATION
  Report Type: Spontaneous
  Country: US (occurrence: US)
  Receive Date: 20250219
  Receipt Date: 20250219
  Transmission Date: 20250408
  Serious: No
  Sender: OTSUKA
  Company Number: US-OTSUKA-2024_019705

PATIENT
  Age: 20 Year
  Sex: Female

DRUGS (9)
  1. BUSULFAN [Suspect]
     Active Substance: BUSULFAN
     Indication: Congenital aplastic anaemia
     Route: 065
  2. BUSULFAN [Suspect]
     Active Substance: BUSULFAN
     Indication: Bone marrow conditioning regimen
  3. BUSULFAN [Suspect]
     Active Substance: BUSULFAN
     Indication: Allogenic stem cell transplantation
  4. FLUDARABINE [Concomitant]
     Active Substance: FLUDARABINE PHOSPHATE
     Indication: Congenital aplastic anaemia
     Route: 065
  5. FLUDARABINE [Concomitant]
     Active Substance: FLUDARABINE PHOSPHATE
     Indication: Bone marrow conditioning regimen
  6. FLUDARABINE [Concomitant]
     Active Substance: FLUDARABINE PHOSPHATE
     Indication: Allogenic stem cell transplantation
  7. LAPINE T-LYMPHOCYTE IMMUNE GLOBULIN [Concomitant]
     Active Substance: LAPINE T-LYMPHOCYTE IMMUNE GLOBULIN
     Indication: Congenital aplastic anaemia
     Route: 065
  8. LAPINE T-LYMPHOCYTE IMMUNE GLOBULIN [Concomitant]
     Active Substance: LAPINE T-LYMPHOCYTE IMMUNE GLOBULIN
     Indication: Bone marrow conditioning regimen
  9. LAPINE T-LYMPHOCYTE IMMUNE GLOBULIN [Concomitant]
     Active Substance: LAPINE T-LYMPHOCYTE IMMUNE GLOBULIN
     Indication: Allogenic stem cell transplantation

REACTIONS (1)
  - Product use in unapproved indication [Unknown]
